FAERS Safety Report 4677293-9 (Version None)
Quarter: 2005Q2

REPORT INFORMATION
  Report Type: 
  Country: None (occurrence: None)
  Receive Date: 20050526
  Receipt Date: 20050517
  Transmission Date: 20051028
  Serious: Yes (Hospitalization, Other)
  Sender: FDA-Public Use
  Company Number: 2005-04-1410

PATIENT
  Age: 54 Year
  Sex: Male
  Weight: 72 kg

DRUGS (3)
  1. PEG-INTRON [Suspect]
     Indication: HEPATITIS C
     Dosage: 50 MCG QW SUBCUTANEOUS
     Route: 058
     Dates: start: 20050124, end: 20050401
  2. REBETOL [Suspect]
     Indication: HEPATITIS C
     Dosage: 800 MG ORAL
     Route: 048
     Dates: start: 20050124, end: 20050401
  3. PROHEPARUM TABLETS [Concomitant]

REACTIONS (8)
  - ANOREXIA [None]
  - BACK PAIN [None]
  - HAEMATURIA [None]
  - PROTEINURIA [None]
  - PYREXIA [None]
  - RHABDOMYOLYSIS [None]
  - SEPSIS [None]
  - STAPHYLOCOCCAL INFECTION [None]
